FAERS Safety Report 14114002 (Version 1)
Quarter: 2017Q4

REPORT INFORMATION
  Report Type: Spontaneous
  Country: US (occurrence: US)
  Receive Date: 20171023
  Receipt Date: 20171023
  Transmission Date: 20180321
  Serious: No
  Sender: FDA-Public Use
  Company Number: US-009507513-1709USA013998

PATIENT
  Age: 18 Year
  Sex: Female
  Weight: 58.96 kg

DRUGS (2)
  1. LEXAPRO [Concomitant]
     Active Substance: ESCITALOPRAM OXALATE
     Dosage: UNK
  2. NUVARING [Suspect]
     Active Substance: ETHINYL ESTRADIOL\ETONOGESTREL
     Indication: CONTRACEPTION
     Dosage: 1 RING, 3 WEEKS, NO BREAK
     Route: 067
     Dates: start: 201703

REACTIONS (2)
  - Inappropriate schedule of drug administration [Unknown]
  - Device expulsion [Unknown]

NARRATIVE: CASE EVENT DATE: 20170927
